FAERS Safety Report 7404232-X (Version None)
Quarter: 2011Q2

REPORT INFORMATION
  Report Type: 
  Country: None (occurrence: None)
  Receive Date: 20110408
  Receipt Date: 20110404
  Transmission Date: 20111010
  Serious: Yes (Life-Threatening)
  Sender: FDA-Public Use
  Company Number: FR-ASTRAZENECA-2011SE18744

PATIENT
  Age: 18090 Day
  Sex: Male

DRUGS (11)
  1. XYLOCAINE [Suspect]
     Indication: CORONARY ARTERY DISEASE
     Route: 042
     Dates: start: 20110216, end: 20110216
  2. TENORMIN [Concomitant]
     Route: 048
  3. KARDEGIC [Concomitant]
     Route: 048
  4. PLAVIX [Concomitant]
     Route: 048
  5. VITAMIN B6 [Concomitant]
     Route: 048
  6. PARACETAMOL [Suspect]
     Indication: CORONARY ARTERY DISEASE
     Route: 042
     Dates: start: 20110216, end: 20110216
  7. TRANXENE [Suspect]
     Indication: CORONARY ARTERY DISEASE
     Route: 042
     Dates: start: 20110216, end: 20110216
  8. AERIUS [Concomitant]
     Route: 048
  9. LOVENOX [Concomitant]
     Route: 058
  10. NITRODERM [Concomitant]
     Route: 062
  11. VITAMIN B1 TAB [Concomitant]
     Route: 048

REACTIONS (1)
  - ANGIOEDEMA [None]
